FAERS Safety Report 23098871 (Version 1)
Quarter: 2023Q4

REPORT INFORMATION
  Report Type: Spontaneous
  Country: US (occurrence: US)
  Receive Date: 20231024
  Receipt Date: 20231024
  Transmission Date: 20240110
  Serious: Yes (Life-Threatening, Hospitalization, Other)
  Sender: FDA-Public Use
  Company Number: US-LUPIN PHARMACEUTICALS INC.-2023-09135

PATIENT
  Age: 25 Year
  Sex: Female

DRUGS (3)
  1. GABAPENTIN [Suspect]
     Active Substance: GABAPENTIN
     Indication: Product used for unknown indication
     Dosage: UNK
     Route: 065
  2. OXYCODONE [Suspect]
     Active Substance: OXYCODONE
     Indication: Product used for unknown indication
     Dosage: UNK, CHRONIC OPIOID USE
     Route: 065
  3. FENTANYL [Suspect]
     Active Substance: FENTANYL\FENTANYL CITRATE
     Indication: Product used for unknown indication
     Dosage: UNK, CHRONIC OPIOID USE
     Route: 065

REACTIONS (13)
  - Acute respiratory distress syndrome [Recovering/Resolving]
  - Septic shock [Recovering/Resolving]
  - Pneumonia [Recovering/Resolving]
  - Pharyngeal abscess [Recovering/Resolving]
  - Pneumothorax [Recovering/Resolving]
  - Lung infiltration [Recovering/Resolving]
  - Deep vein thrombosis [Recovering/Resolving]
  - Respiratory failure [Recovering/Resolving]
  - Streptococcal infection [Recovering/Resolving]
  - Syncope [Recovering/Resolving]
  - Overdose [Unknown]
  - Exposure during pregnancy [Unknown]
  - Premature delivery [Unknown]
